FAERS Safety Report 14184712 (Version 1)
Quarter: 2017Q4

REPORT INFORMATION
  Report Type: Spontaneous
  Country: US (occurrence: US)
  Receive Date: 20171113
  Receipt Date: 20171113
  Transmission Date: 20180321
  Serious: No
  Sender: FDA-Public Use
  Company Number: US-BAUSCH-BL-2017-021075

PATIENT
  Age: 80 Year
  Sex: Female
  Weight: 39.95 kg

DRUGS (2)
  1. ADVANCED EYE RELIEF DRY EYE [Concomitant]
     Indication: DRY EYE
     Route: 047
  2. ALAWAY [Suspect]
     Active Substance: KETOTIFEN FUMARATE
     Indication: EYE ALLERGY
     Dosage: ONE DROP IN EACH EYE, BOTH EYES
     Route: 047
     Dates: start: 20170709

REACTIONS (2)
  - Hypoaesthesia eye [Not Recovered/Not Resolved]
  - Eye pruritus [Unknown]

NARRATIVE: CASE EVENT DATE: 20170709
